APPROVED DRUG PRODUCT: CHLORDIAZEPOXIDE HYDROCHLORIDE
Active Ingredient: CHLORDIAZEPOXIDE HYDROCHLORIDE
Strength: 25MG
Dosage Form/Route: CAPSULE;ORAL
Application: A084769 | Product #001 | TE Code: AB
Applicant: BARR LABORATORIES INC
Approved: Approved Prior to Jan 1, 1982 | RLD: No | RS: Yes | Type: RX